FAERS Safety Report 8394987-2 (Version None)
Quarter: 2012Q2

REPORT INFORMATION
  Report Type: 
  Country: None (occurrence: None)
  Receive Date: 20120530
  Receipt Date: 20120329
  Transmission Date: 20120825
  Serious: No
  Sender: FDA-Public Use
  Company Number: US-GLAXOSMITHKLINE-A0972510A

PATIENT
  Age: 49 Year
  Sex: Female

DRUGS (5)
  1. FLOLAN [Suspect]
     Indication: SARCOIDOSIS
     Dosage: 21NGKM SEE DOSAGE TEXT
     Route: 042
     Dates: start: 20110331
  2. COUMADIN [Concomitant]
  3. METHOTREXATE [Concomitant]
     Dosage: 4TABS WEEKLY
  4. TRACLEER [Concomitant]
     Dosage: 125MG TWICE PER DAY
  5. VIAGRA [Concomitant]
     Dosage: 25MG THREE TIMES PER DAY

REACTIONS (1)
  - RASH [None]
